FAERS Safety Report 7091193-9 (Version None)
Quarter: 2010Q4

REPORT INFORMATION
  Report Type: 
  Country: None (occurrence: None)
  Receive Date: 20101101
  Receipt Date: 20101020
  Transmission Date: 20110411
  Serious: Yes (Hospitalization)
  Sender: FDA-Public Use
  Company Number: US-1183795

PATIENT
  Age: 75 Year
  Sex: Female
  Weight: 65.7716 kg

DRUGS (4)
  1. PATANASE [Suspect]
     Indication: SINUSITIS
     Dosage: (2 SPRAYS EACH NOSTRIL BID NASAL)
     Route: 045
     Dates: end: 20101014
  2. LEVAQUIN [Concomitant]
  3. SYNTHROID [Concomitant]
  4. B-TABS PREDNISONE [Concomitant]

REACTIONS (3)
  - ASTHENOPIA [None]
  - DYSPNOEA [None]
  - FATIGUE [None]
